FAERS Safety Report 5900531-9 (Version None)
Quarter: 2008Q3

REPORT INFORMATION
  Report Type: 
  Country: None (occurrence: None)
  Receive Date: 20080926
  Receipt Date: 20080916
  Transmission Date: 20090109
  Serious: No
  Sender: FDA-Public Use
  Company Number: US-B.I. PHARMACEUTICALS,INC./RIDGEFIELD-2008-BP-12423BP

PATIENT
  Sex: Female

DRUGS (5)
  1. SPIRIVA [Suspect]
     Indication: CHRONIC OBSTRUCTIVE PULMONARY DISEASE
     Dosage: 18MCG
     Route: 055
     Dates: start: 20080201
  2. LISINOPRIL [Concomitant]
     Indication: HYPERTENSION
     Dosage: 20MG
     Route: 048
     Dates: start: 20080201
  3. THEOPHYLLINE [Concomitant]
     Indication: BRONCHITIS
     Dosage: 600MG
     Route: 048
     Dates: start: 20080201
  4. DILTIAZEM HCL [Concomitant]
     Indication: HYPERTENSION
     Dosage: 360MG
     Route: 048
     Dates: start: 20080201
  5. METFORMIN HCL [Concomitant]
     Indication: BLOOD GLUCOSE INCREASED
     Dosage: 500MG
     Route: 048
     Dates: start: 20070101

REACTIONS (3)
  - LIP PAIN [None]
  - LIP SWELLING [None]
  - ORAL MUCOSAL DISCOLOURATION [None]
